FAERS Safety Report 12093393 (Version 1)
Quarter: 2016Q1

REPORT INFORMATION
  Report Type: Spontaneous
  Country: US (occurrence: None)
  Receive Date: 20160218
  Receipt Date: 20160218
  Transmission Date: 20160526
  Serious: No
  Sender: FDA-Public Use
  Company Number: None

PATIENT
  Age: 77 Year
  Sex: Female
  Weight: 62.6 kg

DRUGS (9)
  1. LOW DOSE ASPIRIN [Concomitant]
     Active Substance: ASPIRIN
  2. EXEMESTANE. [Concomitant]
     Active Substance: EXEMESTANE
  3. THYROXINE [Concomitant]
     Active Substance: LEVOTHYROXINE
  4. CALCIUM [Concomitant]
     Active Substance: CALCIUM
  5. MEDICATION FOR CHOLESTEROL [Concomitant]
  6. AZITHROMYCIN ANHYDROUS. [Suspect]
     Active Substance: AZITHROMYCIN ANHYDROUS
     Indication: OROPHARYNGEAL PAIN
     Route: 048
     Dates: start: 20160204, end: 20160208
  7. GERITOL [Concomitant]
     Active Substance: MINERALS\VITAMINS
  8. VITAMIN C [Concomitant]
     Active Substance: ASCORBIC ACID
  9. FISH OIL [Concomitant]
     Active Substance: FISH OIL

REACTIONS (1)
  - Hypoacusis [None]

NARRATIVE: CASE EVENT DATE: 20160204
